FAERS Safety Report 9089769 (Version 1)
Quarter: 2013Q1

REPORT INFORMATION
  Report Type: Spontaneous
  Country: ES (occurrence: ES)
  Receive Date: 20130218
  Receipt Date: 20130218
  Transmission Date: 20140127
  Serious: Yes (Hospitalization)
  Sender: FDA-Public Use
  Company Number: ES-009507513-1302ESP007069

PATIENT
  Age: 53 Year
  Sex: Male
  Weight: 76 kg

DRUGS (5)
  1. TEMODAL [Suspect]
     Indication: ASTROCYTOMA
     Dosage: UNTIL 18/06/2012 150 MG/D
     Route: 048
     Dates: start: 20120605, end: 20120627
  2. FORTECORTIN [Concomitant]
     Dosage: 1 MG, TID
     Route: 048
     Dates: start: 20120605
  3. EDEMOX [Concomitant]
     Dosage: 125 MG, BID
     Route: 048
     Dates: start: 20120614
  4. KEPPRA [Concomitant]
     Indication: CONVULSION PROPHYLAXIS
     Dosage: 0.5 G, BID
     Route: 048
     Dates: start: 20120605
  5. ATORVASTATIN CALCIUM [Concomitant]
     Indication: DYSLIPIDAEMIA
     Dosage: 20 MG, QD
     Route: 048
     Dates: start: 20120605

REACTIONS (1)
  - Pulmonary embolism [Recovered/Resolved]
